FAERS Safety Report 5275759-4 (Version None)
Quarter: 2007Q1

REPORT INFORMATION
  Report Type: 
  Country: None (occurrence: None)
  Receive Date: 20070326
  Receipt Date: 20070322
  Transmission Date: 20070707
  Serious: Yes (Other)
  Sender: FDA-Public Use
  Company Number: BR-GLAXOSMITHKLINE-A0644345A

PATIENT
  Age: 48 Year
  Sex: Female
  Weight: 65 kg

DRUGS (3)
  1. SERETIDE [Suspect]
     Indication: BRONCHITIS
     Dosage: 1U THREE TIMES PER DAY
     Route: 055
     Dates: start: 20040101
  2. BEROTEC [Concomitant]
     Route: 065
     Dates: start: 20070219
  3. ATROVENT [Concomitant]
     Route: 065
     Dates: start: 20070219

REACTIONS (1)
  - APNOEA [None]
